FAERS Safety Report 13354354 (Version 1)
Quarter: 2017Q1

REPORT INFORMATION
  Report Type: Spontaneous
  Country: None (occurrence: US)
  Receive Date: 20170318
  Receipt Date: 20170318
  Transmission Date: 20170429
  Serious: No
  Sender: FDA-Public Use
  Company Number: None

PATIENT
  Age: 30 Year
  Sex: Male
  Weight: 75 kg

DRUGS (3)
  1. CISPLATIN. [Suspect]
     Active Substance: CISPLATIN
     Dates: end: 20170208
  2. TAXOL [Suspect]
     Active Substance: PACLITAXEL
     Dates: end: 20170225
  3. IFOSFAMIDE. [Suspect]
     Active Substance: IFOSFAMIDE
     Dates: end: 20170208

REACTIONS (7)
  - Infusion related reaction [None]
  - Immobile [None]
  - Metastases to central nervous system [None]
  - Speech disorder [None]
  - Pneumonia pseudomonal [None]
  - Cerebral haemorrhage [None]
  - Post procedural pneumonia [None]

NARRATIVE: CASE EVENT DATE: 20170226
